FAERS Safety Report 4861230-8 (Version None)
Quarter: 2005Q4

REPORT INFORMATION
  Report Type: 
  Country: None (occurrence: None)
  Receive Date: 20051220
  Receipt Date: 20051208
  Transmission Date: 20060501
  Serious: Yes (Life-Threatening)
  Sender: FDA-Public Use
  Company Number: FR-BRISTOL-MYERS SQUIBB COMPANY-13218847

PATIENT
  Age: 81 Year
  Sex: Female
  Weight: 45 kg

DRUGS (5)
  1. ENDOXAN [Suspect]
     Route: 042
     Dates: start: 20050511, end: 20050511
  2. SOLU-MEDROL [Concomitant]
     Route: 042
     Dates: start: 20050511, end: 20050511
  3. OSMOTAN G [Concomitant]
     Route: 042
     Dates: start: 20050511, end: 20050511
  4. PRIMPERAN INJ [Concomitant]
     Route: 042
     Dates: start: 20050511, end: 20050511
  5. ONDANSETRON [Concomitant]
     Route: 042
     Dates: start: 20050511, end: 20050511

REACTIONS (2)
  - ANAPHYLACTIC SHOCK [None]
  - CONVULSION [None]
